FAERS Safety Report 9156446 (Version 1)
Quarter: 2013Q1

REPORT INFORMATION
  Report Type: Spontaneous
  Country: FR (occurrence: None)
  Receive Date: 20130208
  Receipt Date: 20130208
  Transmission Date: 20140127
  Serious: Yes (Hospitalization)
  Sender: FDA-Public Use
  Company Number: LEVE20130002

PATIENT
  Age: 15 Year
  Sex: Male

DRUGS (2)
  1. LEVETIRACETAM [Suspect]
     Indication: GRAND MAL CONVULSION
     Route: 048
  2. METHOTREXATE [Suspect]

REACTIONS (5)
  - Drug interaction [None]
  - Vomiting [None]
  - Renal failure [None]
  - Hypertension [None]
  - Convulsion [None]
